FAERS Safety Report 24578724 (Version 1)
Quarter: 2024Q4

REPORT INFORMATION
  Report Type: Report from Study
  Country: US (occurrence: US)
  Receive Date: 20241105
  Receipt Date: 20241105
  Transmission Date: 20250115
  Serious: Yes (Other)
  Sender: AMGEN
  Company Number: US-AMGEN-USASL2024126716

PATIENT
  Age: 73 Year
  Sex: Male

DRUGS (2)
  1. TEPEZZA [Suspect]
     Active Substance: TEPROTUMUMAB-TRBW
     Indication: Toxic goitre
     Dosage: 10 MILLIGRAM/KILOGRAM, FIRST INFUSION
     Route: 042
     Dates: start: 20240214
  2. TEPEZZA [Suspect]
     Active Substance: TEPROTUMUMAB-TRBW
     Indication: Endocrine ophthalmopathy
     Dosage: 20 MILLIGRAM/KILOGRAM (THIRD TO EIGHT INFUSION)
     Route: 042
     Dates: start: 2024, end: 20240716

REACTIONS (5)
  - Pulmonary fibrosis [Unknown]
  - COVID-19 [Unknown]
  - Pain [Recovered/Resolved]
  - Headache [Recovered/Resolved]
  - Hypoacusis [Unknown]

NARRATIVE: CASE EVENT DATE: 20240101
